FAERS Safety Report 10056326 (Version 1)
Quarter: 2014Q2

REPORT INFORMATION
  Report Type: Spontaneous
  Country: US (occurrence: None)
  Receive Date: 20140401
  Receipt Date: 20140401
  Transmission Date: 20141212
  Serious: Yes (Death)
  Sender: FDA-Public Use
  Company Number: FK201401039

PATIENT
  Age: 2 Week
  Sex: Female
  Weight: 3.5 kg

DRUGS (4)
  1. BUPIVACAINE [Suspect]
     Indication: LOCAL ANAESTHESIA
  2. DEXTROSE (GLUCOSE) [Concomitant]
  3. SEVOFLURANE [Concomitant]
  4. BALANCED SALT SOLUTION (EYE STREAM) [Concomitant]

REACTIONS (8)
  - Encephalopathy [None]
  - Post procedural complication [None]
  - Cerebral hypoperfusion [None]
  - Partial seizures [None]
  - Status epilepticus [None]
  - Procedural complication [None]
  - Obstructive airways disorder [None]
  - Brain injury [None]
